FAERS Safety Report 6627724-X (Version None)
Quarter: 2010Q1

REPORT INFORMATION
  Report Type: 
  Country: None (occurrence: None)
  Receive Date: 20100311
  Receipt Date: 20100301
  Transmission Date: 20100710
  Serious: Yes (Other)
  Sender: FDA-Public Use
  Company Number: PHHY2010AU08743

PATIENT
  Sex: Female
  Weight: 68 kg

DRUGS (3)
  1. ACLASTA [Suspect]
     Indication: OSTEOPOROSIS
     Dosage: 5 MG/100 ML
     Dates: start: 20090601
  2. FOSAMAX [Concomitant]
     Route: 048
  3. PREDNISOLONE [Concomitant]
     Dosage: 5 MG, UNK

REACTIONS (3)
  - DRUG INEFFECTIVE [None]
  - FALL [None]
  - HIP FRACTURE [None]
